APPROVED DRUG PRODUCT: DOXYCYCLINE HYCLATE
Active Ingredient: DOXYCYCLINE HYCLATE
Strength: EQ 50MG BASE
Dosage Form/Route: CAPSULE;ORAL
Application: A208263 | Product #001
Applicant: NESHER PHARMACEUTICALS USA LLC
Approved: Nov 22, 2021 | RLD: No | RS: No | Type: DISCN